FAERS Safety Report 7240851-1 (Version None)
Quarter: 2011Q1

REPORT INFORMATION
  Report Type: 
  Country: None (occurrence: None)
  Receive Date: 20110124
  Receipt Date: 20110118
  Transmission Date: 20110831
  Serious: Yes (Hospitalization)
  Sender: FDA-Public Use
  Company Number: NL-ABBOTT-11P-114-0699103-00

PATIENT
  Sex: Male

DRUGS (2)
  1. ASPRO [Suspect]
     Indication: PNEUMONIA MYCOPLASMAL
  2. KLACID TABLET 250 MG [Suspect]
     Indication: PNEUMONIA MYCOPLASMAL

REACTIONS (4)
  - WEIGHT DECREASED [None]
  - HEPATIC FUNCTION ABNORMAL [None]
  - RASH [None]
  - SERUM FERRITIN INCREASED [None]
